FAERS Safety Report 8950890 (Version 1)
Quarter: 2012Q4

REPORT INFORMATION
  Report Type: 
  Country: BR (occurrence: BR)
  Receive Date: 20121207
  Receipt Date: 20121207
  Transmission Date: 20130627
  Serious: Yes (Hospitalization, Other)
  Sender: FDA-Public Use
  Company Number: BR-SANOFI-AVENTIS-2012SA088468

PATIENT
  Age: 28 Year
  Sex: Male

DRUGS (8)
  1. PREDNISONE [Suspect]
     Indication: LEPROSY
     Route: 065
     Dates: start: 200105, end: 2003
  2. PREDNISONE [Suspect]
     Indication: LEPROSY
     Route: 065
     Dates: start: 2003
  3. RIFAMPICIN [Suspect]
     Indication: LEPROSY
     Route: 065
     Dates: start: 200105
  4. THALIDOMIDE [Suspect]
     Indication: LEPROSY
     Route: 065
     Dates: start: 2002, end: 2003
  5. THALIDOMIDE [Suspect]
     Indication: LEPROSY
     Route: 065
     Dates: end: 2007
  6. THALIDOMIDE [Suspect]
     Indication: LEPROSY
     Route: 065
     Dates: start: 2003
  7. CLOFAZIMINE [Concomitant]
     Indication: LEPROSY
     Dates: start: 200105, end: 200304
  8. DAPSONE [Concomitant]
     Indication: LEPROSY
     Dates: start: 200105, end: 200304

REACTIONS (6)
  - Zygomycosis [Recovered/Resolved]
  - Rash erythematous [Recovered/Resolved]
  - Fistula [Recovered/Resolved]
  - Chromoblastomycosis [Recovered/Resolved]
  - Skin plaque [Recovered/Resolved]
  - Influenza like illness [Unknown]
